FAERS Safety Report 14799483 (Version 1)
Quarter: 2018Q2

REPORT INFORMATION
  Report Type: Spontaneous
  Country: TR (occurrence: TR)
  Receive Date: 20180424
  Receipt Date: 20180424
  Transmission Date: 20180711
  Serious: No
  Sender: FDA-Public Use
  Company Number: TR-JNJFOC-20180424578

PATIENT
  Age: 11 Year
  Sex: Female

DRUGS (1)
  1. DUROGESIC [Suspect]
     Active Substance: FENTANYL
     Indication: PALLIATIVE CARE
     Route: 062

REACTIONS (1)
  - Application site irritation [Unknown]
